FAERS Safety Report 10049077 (Version 1)
Quarter: 2014Q1

REPORT INFORMATION
  Report Type: Report from Study
  Country: US (occurrence: US)
  Receive Date: 20140331
  Receipt Date: 20140331
  Transmission Date: 20141002
  Serious: Yes (Hospitalization)
  Sender: FDA-Public Use
  Company Number: US-ABBVIE-14P-163-1215709-00

PATIENT
  Age: 67 Year
  Sex: Male

DRUGS (2)
  1. HUMIRA [Suspect]
     Indication: COLITIS ULCERATIVE
     Route: 058
     Dates: start: 20140205
  2. PREDNISONE [Concomitant]
     Indication: CHRONIC OBSTRUCTIVE PULMONARY DISEASE
     Dosage: TAPERING

REACTIONS (6)
  - Dizziness [Unknown]
  - Chronic obstructive pulmonary disease [Unknown]
  - Hyperhidrosis [Unknown]
  - Dyspnoea [Unknown]
  - Clostridium difficile infection [Unknown]
  - Back pain [Not Recovered/Not Resolved]
